FAERS Safety Report 9222826 (Version 1)
Quarter: 2013Q2

REPORT INFORMATION
  Report Type: Spontaneous
  Country: TH (occurrence: TH)
  Receive Date: 20130410
  Receipt Date: 20130410
  Transmission Date: 20140414
  Serious: Yes (Life-Threatening, Hospitalization)
  Sender: FDA-Public Use
  Company Number: TH-ROCHE-1206329

PATIENT
  Age: 81 Year
  Sex: Female

DRUGS (1)
  1. ACTILYSE [Suspect]
     Indication: CEREBROVASCULAR ACCIDENT
     Route: 042
     Dates: start: 20110322, end: 20110322

REACTIONS (5)
  - Hypotension [Recovered/Resolved]
  - Central nervous system function test abnormal [Recovered/Resolved]
  - Somnolence [Recovered/Resolved]
  - Heart rate decreased [Recovered/Resolved]
  - Peripheral arterial occlusive disease [Recovered/Resolved]
